FAERS Safety Report 23333186 (Version 2)
Quarter: 2024Q1

REPORT INFORMATION
  Report Type: Spontaneous
  Country: GB (occurrence: GB)
  Receive Date: 20231222
  Receipt Date: 20240130
  Transmission Date: 20240410
  Serious: Yes (Other)
  Sender: FDA-Public Use
  Company Number: GB-002147023-NVSC2023GB269742

PATIENT
  Sex: Male

DRUGS (1)
  1. INCLISIRAN [Suspect]
     Active Substance: INCLISIRAN
     Indication: Product used for unknown indication
     Dosage: UNK
     Route: 065

REACTIONS (7)
  - Diabetes mellitus [Unknown]
  - Liver function test increased [Unknown]
  - Blood cholesterol increased [Unknown]
  - Hepatic steatosis [Unknown]
  - Drug intolerance [Unknown]
  - Overweight [Unknown]
  - Fatigue [Unknown]
